FAERS Safety Report 6261915-5 (Version None)
Quarter: 2009Q3

REPORT INFORMATION
  Report Type: 
  Country: None (occurrence: None)
  Receive Date: 20090709
  Receipt Date: 20090701
  Transmission Date: 20100115
  Serious: Yes (Life-Threatening)
  Sender: FDA-Public Use
  Company Number: B0581464A

PATIENT
  Age: 22 Year
  Sex: Female

DRUGS (4)
  1. AVAMYS [Suspect]
     Route: 045
     Dates: start: 20090613, end: 20090613
  2. SULFASALAZINE [Concomitant]
     Indication: ARTHRITIS
     Route: 048
     Dates: start: 20090519
  3. LANSOPRAZOLE [Concomitant]
     Indication: PROPHYLAXIS
     Route: 048
     Dates: start: 20090429
  4. ARCOXIA [Concomitant]
     Indication: ARTHRITIS
     Route: 048
     Dates: start: 20090519

REACTIONS (1)
  - ANAPHYLACTIC REACTION [None]
